FAERS Safety Report 7755344-2 (Version None)
Quarter: 2011Q3

REPORT INFORMATION
  Report Type: 
  Country: None (occurrence: None)
  Receive Date: 20110914
  Receipt Date: 20110908
  Transmission Date: 20111222
  Serious: Yes (Death, Hospitalization)
  Sender: FDA-Public Use
  Company Number: 2010US003883

PATIENT
  Age: 60 Year
  Sex: Female
  Weight: 91 kg

DRUGS (15)
  1. PROGRAF [Suspect]
     Indication: RENAL TRANSPLANT
     Dosage: 5 MG, UID/QD, ORAL
     Route: 048
  2. SYNTHROID [Concomitant]
  3. INSULIN (INSULIN) [Concomitant]
  4. CLONIDINE HCL (CLONIDINE HYDROCHLORIDE) [Concomitant]
  5. SODIUM BICARBONATE IN PLASTIC CONTAINER [Concomitant]
  6. PROZAC [Concomitant]
  7. XANAX [Concomitant]
  8. HYDRALAZINE HCL [Concomitant]
  9. CELLCEPT [Concomitant]
  10. STOOL SOFTENER (DOCUSATE SODIUM) [Concomitant]
  11. NIFEDICAL XL (NIFEDIPINE) [Concomitant]
  12. PLAVIX [Concomitant]
  13. COREG [Concomitant]
  14. MAGONATE (MAGNESIUM GLUCONATE) [Concomitant]
  15. SENNA LAXATIVE (SENNOSIDE A+B) [Concomitant]

REACTIONS (1)
  - CEREBROVASCULAR ACCIDENT [None]
